FAERS Safety Report 24286873 (Version 1)
Quarter: 2024Q3

REPORT INFORMATION
  Report Type: Other
  Country: FR (occurrence: FR)
  Receive Date: 20240905
  Receipt Date: 20240905
  Transmission Date: 20241016
  Serious: Yes (Hospitalization, Other)
  Sender: GENUS LIFESCIENCES
  Company Number: FR-Genus_Lifesciences-USA-POI0580202400145

PATIENT
  Age: 67 Year
  Sex: Male

DRUGS (11)
  1. ACETAMINOPHEN\CODEINE PHOSPHATE [Suspect]
     Active Substance: ACETAMINOPHEN\CODEINE PHOSPHATE
     Indication: Analgesic therapy
     Dosage: 1 TO 2 G
     Dates: end: 2024
  2. IMIPENEM [Concomitant]
     Active Substance: IMIPENEM
     Indication: Antibiotic therapy
  3. FLUCONAZOLE [Concomitant]
     Active Substance: FLUCONAZOLE
     Indication: Antibiotic therapy
  4. INSULIN NOS [Concomitant]
     Active Substance: INSULIN NOS
     Indication: Product used for unknown indication
  5. ODEFSEY [Concomitant]
     Active Substance: EMTRICITABINE\RILPIVIRINE HYDROCHLORIDE\TENOFOVIR ALAFENAMIDE FUMARATE
     Indication: Product used for unknown indication
     Dosage: 200, 25, 25
  6. ARUNAVIR [Concomitant]
     Indication: Product used for unknown indication
  7. RITONAVIR [Concomitant]
     Active Substance: RITONAVIR
     Indication: Product used for unknown indication
  8. TIVICAY [Concomitant]
     Active Substance: DOLUTEGRAVIR SODIUM
     Indication: Product used for unknown indication
  9. ASPIRIN [Concomitant]
     Active Substance: ASPIRIN
     Indication: Product used for unknown indication
  10. MORPHINE SULFATE [Concomitant]
     Active Substance: MORPHINE SULFATE
     Indication: Analgesic therapy
  11. NEFOPAM [Concomitant]
     Active Substance: NEFOPAM
     Indication: Analgesic therapy

REACTIONS (1)
  - Pyroglutamic acidosis [Recovered/Resolved]

NARRATIVE: CASE EVENT DATE: 20240101
